FAERS Safety Report 11077920 (Version 1)
Quarter: 2015Q2

REPORT INFORMATION
  Report Type: Spontaneous
  Country: US (occurrence: None)
  Receive Date: 20150429
  Receipt Date: 20150429
  Transmission Date: 20150821
  Serious: Yes (Hospitalization)
  Sender: FDA-Public Use
  Company Number: None

PATIENT
  Age: 55 Year
  Sex: Female
  Weight: 79.38 kg

DRUGS (6)
  1. HYDROCHLOROTHIAZIDE. [Concomitant]
     Active Substance: HYDROCHLOROTHIAZIDE
  2. FLONASE [Concomitant]
     Active Substance: FLUTICASONE PROPIONATE
  3. RESTASIS [Concomitant]
     Active Substance: CYCLOSPORINE
  4. MULTI VITAMIN [Concomitant]
     Active Substance: VITAMINS
  5. AMLODIPINE BESYLATE. [Concomitant]
     Active Substance: AMLODIPINE BESYLATE
  6. DEPO-MEDROL [Suspect]
     Active Substance: METHYLPREDNISOLONE ACETATE
     Indication: INFLAMMATION
     Dates: start: 20150408, end: 20150408

REACTIONS (11)
  - Dizziness [None]
  - Abdominal pain upper [None]
  - Muscular weakness [None]
  - Fatigue [None]
  - Dyspnoea [None]
  - Pain in extremity [None]
  - Hypoaesthesia [None]
  - Headache [None]
  - Back pain [None]
  - Tremor [None]
  - Disturbance in attention [None]

NARRATIVE: CASE EVENT DATE: 20150408
